FAERS Safety Report 23737990 (Version 3)
Quarter: 2025Q1

REPORT INFORMATION
  Report Type: Report from Study
  Country: CO (occurrence: CO)
  Receive Date: 20240412
  Receipt Date: 20250324
  Transmission Date: 20250408
  Serious: Yes (Disabling, Other)
  Sender: NOVARTIS
  Company Number: CO-002147023-NVSC2023CO207487

PATIENT
  Age: 50 Year
  Sex: Male

DRUGS (5)
  1. KESIMPTA [Suspect]
     Active Substance: OFATUMUMAB
     Indication: Multiple sclerosis
     Dosage: 20 MG (EVERY 28 DAYS)
     Route: 058
     Dates: start: 202211, end: 20230811
  2. KESIMPTA [Suspect]
     Active Substance: OFATUMUMAB
     Route: 065
  3. KESIMPTA [Suspect]
     Active Substance: OFATUMUMAB
     Dosage: 20 MG, QMO
     Route: 058
     Dates: start: 20221103
  4. CARBAMAZEPINE [Concomitant]
     Active Substance: CARBAMAZEPINE
     Indication: Product used for unknown indication
     Dosage: 200 MG, Q24H (EVERY 24 HOURS)
     Route: 048
     Dates: start: 202302
  5. ETORICOXIB [Concomitant]
     Active Substance: ETORICOXIB
     Indication: Product used for unknown indication
     Dosage: 120 MG, Q24H (7 TABLETS. TAKE ONE EVERY DAY.)
     Route: 065

REACTIONS (28)
  - Skin depigmentation [Not Recovered/Not Resolved]
  - Osteoarthritis [Unknown]
  - Central nervous system lesion [Unknown]
  - Osteochondrosis [Unknown]
  - Macule [Not Recovered/Not Resolved]
  - Blood creatinine increased [Unknown]
  - Aspartate aminotransferase abnormal [Unknown]
  - White blood cell count abnormal [Unknown]
  - CD19 lymphocyte count abnormal [Unknown]
  - Plasma cell disorder [Unknown]
  - T-lymphocyte count abnormal [Unknown]
  - B-lymphocyte count abnormal [Unknown]
  - Natural killer cell count decreased [Unknown]
  - Monocyte count abnormal [Unknown]
  - Trigeminal neuralgia [Unknown]
  - Peripheral sensory neuropathy [Unknown]
  - Ear pain [Unknown]
  - Tympanic membrane perforation [Unknown]
  - Excessive cerumen production [Unknown]
  - Ear pain [Unknown]
  - Tinnitus [Unknown]
  - Dizziness [Unknown]
  - Drug eruption [Unknown]
  - Rash pustular [Unknown]
  - Herpes zoster [Unknown]
  - Cerumen impaction [Unknown]
  - Decreased immune responsiveness [Unknown]
  - Product dose omission issue [Unknown]

NARRATIVE: CASE EVENT DATE: 20230601
